FAERS Safety Report 25547702 (Version 1)
Quarter: 2025Q3

REPORT INFORMATION
  Report Type: Spontaneous
  Country: EU (occurrence: EU)
  Receive Date: 20250714
  Receipt Date: 20250714
  Transmission Date: 20251021
  Serious: Yes (Hospitalization)
  Sender: MC2 Therapeutics
  Company Number: EU-MC2 Therapeutics, Ltd-2180444

PATIENT
  Age: 22 Year
  Sex: Female

DRUGS (2)
  1. WYNZORA [Suspect]
     Active Substance: BETAMETHASONE DIPROPIONATE\CALCIPOTRIENE
     Indication: Psoriasis
     Dates: start: 20250601, end: 20250607
  2. YUFLYMA [Concomitant]
     Active Substance: ADALIMUMAB-AATY

REACTIONS (1)
  - Erythema [Recovering/Resolving]

NARRATIVE: CASE EVENT DATE: 20250602
